FAERS Safety Report 11368516 (Version 4)
Quarter: 2015Q3

REPORT INFORMATION
  Report Type: Spontaneous
  Country: US (occurrence: US)
  Receive Date: 20150812
  Receipt Date: 20150911
  Transmission Date: 20151125
  Serious: No
  Sender: FDA-Public Use
  Company Number: US-AMGEN-USASP2015079018

PATIENT
  Age: 59 Year
  Sex: Female

DRUGS (6)
  1. BACITRACIN. [Suspect]
     Active Substance: BACITRACIN
     Indication: EYE SWELLING
     Dosage: 4 X /DAY
     Route: 065
  2. BACITRACIN. [Suspect]
     Active Substance: BACITRACIN
     Indication: SKIN DISCOLOURATION
  3. BACITRACIN. [Suspect]
     Active Substance: BACITRACIN
     Indication: DARK CIRCLES UNDER EYES
  4. BACITRACIN. [Suspect]
     Active Substance: BACITRACIN
     Indication: EYELID THICKENING
  5. BACITRACIN. [Suspect]
     Active Substance: BACITRACIN
     Indication: ERYTHEMA OF EYELID
  6. ENBREL [Suspect]
     Active Substance: ETANERCEPT
     Indication: PRODUCT USED FOR UNKNOWN INDICATION
     Dosage: UNK
     Route: 065
     Dates: end: 20150726

REACTIONS (11)
  - Dark circles under eyes [Not Recovered/Not Resolved]
  - Skin discolouration [Not Recovered/Not Resolved]
  - Swollen tear duct [Not Recovered/Not Resolved]
  - Injection site pain [Unknown]
  - Vision blurred [Not Recovered/Not Resolved]
  - Infection [Unknown]
  - Erythema of eyelid [Not Recovered/Not Resolved]
  - Injection site haemorrhage [Unknown]
  - Ocular hyperaemia [Not Recovered/Not Resolved]
  - Eye swelling [Not Recovered/Not Resolved]
  - Eyelid thickening [Not Recovered/Not Resolved]

NARRATIVE: CASE EVENT DATE: 201507
